FAERS Safety Report 6932725-8 (Version None)
Quarter: 2010Q3

REPORT INFORMATION
  Report Type: 
  Country: None (occurrence: None)
  Receive Date: 20100819
  Receipt Date: 20100811
  Transmission Date: 20110219
  Serious: Yes (Hospitalization)
  Sender: FDA-Public Use
  Company Number: US-AMGEN-KDL430780

PATIENT
  Sex: Female

DRUGS (1)
  1. ENBREL [Suspect]
     Indication: RHEUMATOID ARTHRITIS
     Route: 058
     Dates: start: 19990901

REACTIONS (4)
  - DENTAL PROSTHESIS PLACEMENT [None]
  - INSOMNIA [None]
  - LUNG NEOPLASM MALIGNANT [None]
  - POST PROCEDURAL HAEMORRHAGE [None]
